FAERS Safety Report 18458489 (Version 1)
Quarter: 2020Q4

REPORT INFORMATION
  Report Type: Spontaneous
  Country: US (occurrence: US)
  Receive Date: 20201103
  Receipt Date: 20201103
  Transmission Date: 20210114
  Serious: Yes (Disabling, Other)
  Sender: FDA-Public Use
  Company Number: US-PURDUE-USA-2020-0174221

PATIENT
  Age: 42 Year
  Sex: Female

DRUGS (1)
  1. OXYCONTIN [Suspect]
     Active Substance: OXYCODONE HYDROCHLORIDE
     Indication: PAIN
     Dosage: UNK
     Route: 048

REACTIONS (7)
  - Behcet^s syndrome [Unknown]
  - Drug dependence [Unknown]
  - Respiratory failure [Unknown]
  - Coma [Unknown]
  - Disability [Unknown]
  - Suicide attempt [Unknown]
  - Arthralgia [Unknown]

NARRATIVE: CASE EVENT DATE: 2005
